FAERS Safety Report 6124077-0 (Version None)
Quarter: 2009Q1

REPORT INFORMATION
  Report Type: 
  Country: None (occurrence: None)
  Receive Date: 20090319
  Receipt Date: 20090313
  Transmission Date: 20090719
  Serious: Yes (Other)
  Sender: FDA-Public Use
  Company Number: PHHY2009DE01572

PATIENT
  Sex: Female

DRUGS (3)
  1. RASILEZ [Suspect]
     Indication: HYPERTENSION
     Dosage: 150 MG
     Route: 048
     Dates: start: 20080404, end: 20081101
  2. RASILEZ [Suspect]
     Dosage: 300 MG
     Route: 048
     Dates: start: 20081101
  3. FUMADERM [Concomitant]
     Indication: PSORIASIS
     Dosage: ONCE DAILY
     Dates: start: 20010101

REACTIONS (4)
  - BLOOD PRESSURE INADEQUATELY CONTROLLED [None]
  - DERMATITIS PSORIASIFORM [None]
  - PAIN [None]
  - PSORIASIS [None]
